FAERS Safety Report 7966831-6 (Version None)
Quarter: 2011Q4

REPORT INFORMATION
  Report Type: 
  Country: None (occurrence: None)
  Receive Date: 20111209
  Receipt Date: 20111201
  Transmission Date: 20120403
  Serious: No
  Sender: FDA-Public Use
  Company Number: US-BIOGENIDEC-2011BI045680

PATIENT
  Age: 42 Year
  Sex: Female

DRUGS (5)
  1. TYSABRI [Concomitant]
     Indication: MULTIPLE SCLEROSIS
     Route: 042
     Dates: start: 20100810, end: 20101216
  2. AVONEX [Suspect]
     Route: 030
     Dates: start: 20080611, end: 20091102
  3. AVONEX [Suspect]
     Indication: MULTIPLE SCLEROSIS
     Route: 030
     Dates: start: 20110121
  4. AVONEX [Suspect]
     Route: 030
     Dates: start: 20100324, end: 20100701
  5. TYSABRI [Concomitant]
     Route: 042
     Dates: start: 20100205, end: 20100205

REACTIONS (1)
  - MOBILITY DECREASED [None]
